FAERS Safety Report 10691146 (Version 2)
Quarter: 2015Q1

REPORT INFORMATION
  Report Type: Spontaneous
  Country: FR (occurrence: FR)
  Receive Date: 20150105
  Receipt Date: 20150217
  Transmission Date: 20150720
  Serious: Yes (Hospitalization)
  Sender: FDA-Public Use
  Company Number: FR-PFIZER INC-2014361647

PATIENT
  Age: 63 Year
  Sex: Male

DRUGS (5)
  1. PASER [Suspect]
     Active Substance: AMINOSALICYLIC ACID
     Dosage: 150 MG/KG, 1X/DAY
     Route: 048
     Dates: start: 20141013
  2. AMIKACINE MYLAN [Suspect]
     Active Substance: AMIKACIN
     Dosage: 10 MG/KG, 1X/DAY
     Route: 041
     Dates: start: 20141013, end: 20141109
  3. ZYVOXID [Suspect]
     Active Substance: LINEZOLID
     Dosage: 600 MG, 1X/DAY
     Route: 048
     Dates: start: 20141013
  4. IZILOX [Suspect]
     Active Substance: MOXIFLOXACIN HYDROCHLORIDE
     Dosage: 400 MG, 1X/DAY
     Route: 048
     Dates: start: 20141013
  5. CYCLOSERINE. [Concomitant]
     Active Substance: CYCLOSERINE
     Dosage: 250 MG, 2X/DAY
     Route: 048
     Dates: start: 20141013, end: 20141126

REACTIONS (1)
  - Hypoacusis [Unknown]

NARRATIVE: CASE EVENT DATE: 201410
